FAERS Safety Report 4588574-1 (Version None)
Quarter: 2005Q1

REPORT INFORMATION
  Report Type: 
  Country: None (occurrence: None)
  Receive Date: 20050222
  Receipt Date: 20050211
  Transmission Date: 20050727
  Serious: Yes (Hospitalization, Other)
  Sender: FDA-Public Use
  Company Number: PHNU2005DE01024

PATIENT
  Sex: Female

DRUGS (3)
  1. DERMESTRIL [Suspect]
     Dosage: UNK, UNK
     Dates: start: 20041008
  2. DERMESTRIL [Suspect]
     Dosage: 1DF
     Dates: start: 20041213
  3. ESTRADERM TTS [Suspect]

REACTIONS (4)
  - HOT FLUSH [None]
  - NEOPLASM MALIGNANT [None]
  - SURGERY [None]
  - THROMBOSIS [None]
